FAERS Safety Report 11239594 (Version 1)
Quarter: 2015Q3

REPORT INFORMATION
  Report Type: Report from Study
  Country: DE (occurrence: None)
  Receive Date: 20150701
  Receipt Date: 20150701
  Transmission Date: 20151125
  Serious: Yes (Other)
  Sender: FDA-Public Use
  Company Number: DE-002015

PATIENT
  Age: 46 Year
  Sex: Female
  Weight: 37.5 kg

DRUGS (1)
  1. REVESTIVE (REVESTIVE) [Suspect]
     Active Substance: TEDUGLUTIDE
     Indication: SHORT-BOWEL SYNDROME
     Dosage: (0.14 ML QD SUBCUTANEOUS)
     Route: 058
     Dates: start: 20150518

REACTIONS (7)
  - Abdominal pain upper [None]
  - Flatulence [None]
  - Vomiting [None]
  - Swelling [None]
  - Diarrhoea [None]
  - Abdominal pain [None]
  - Stoma complication [None]

NARRATIVE: CASE EVENT DATE: 20150525
